FAERS Safety Report 6681163-4 (Version None)
Quarter: 2010Q2

REPORT INFORMATION
  Report Type: 
  Country: None (occurrence: None)
  Receive Date: 20100414
  Receipt Date: 20100406
  Transmission Date: 20101027
  Serious: Yes (Other)
  Sender: FDA-Public Use
  Company Number: US-BAYER-201018717NA

PATIENT
  Age: 57 Year
  Sex: Female

DRUGS (9)
  1. MAGNEVIST [Suspect]
     Indication: IMAGING PROCEDURE
  2. OMNISCAN [Suspect]
     Indication: IMAGING PROCEDURE
  3. OPTIMARK [Suspect]
     Indication: IMAGING PROCEDURE
  4. MULTIHANCE [Suspect]
     Indication: IMAGING PROCEDURE
  5. PROHANCE [Suspect]
     Indication: IMAGING PROCEDURE
  6. GADOLINIUM-BASED CONTRAST AGENT NOS [Suspect]
     Dates: start: 20050628, end: 20050628
  7. GADOLINIUM-BASED CONTRAST AGENT NOS [Suspect]
     Dates: start: 20051209, end: 20051209
  8. GADOLINIUM-BASED CONTRAST AGENT NOS [Suspect]
     Dates: start: 20060511, end: 20060511
  9. GADOLINIUM-BASED CONTRAST AGENT NOS [Suspect]
     Dates: start: 20060919, end: 20060919

REACTIONS (9)
  - DEFORMITY [None]
  - ERYTHEMA [None]
  - EXFOLIATIVE RASH [None]
  - GENERAL PHYSICAL HEALTH DETERIORATION [None]
  - JOINT STIFFNESS [None]
  - NEPHROGENIC SYSTEMIC FIBROSIS [None]
  - OEDEMA PERIPHERAL [None]
  - PAIN OF SKIN [None]
  - SCAR [None]
